FAERS Safety Report 18057173 (Version 1)
Quarter: 2020Q3

REPORT INFORMATION
  Report Type: Spontaneous
  Country: US (occurrence: US)
  Receive Date: 20200722
  Receipt Date: 20200722
  Transmission Date: 20201103
  Serious: Yes (Hospitalization)
  Sender: FDA-Public Use
  Company Number: US-ACTELION-A-US2020-207420

PATIENT
  Age: 41 Year
  Sex: Female
  Weight: 117.01 kg

DRUGS (2)
  1. OPSUMIT [Suspect]
     Active Substance: MACITENTAN
     Indication: PULMONARY ARTERIAL HYPERTENSION
     Dosage: 10 MG, QD
     Route: 048
  2. REMODULIN [Suspect]
     Active Substance: TREPROSTINIL
     Indication: PRODUCT USED FOR UNKNOWN INDICATION
     Route: 058

REACTIONS (7)
  - Infusion site swelling [Unknown]
  - Dizziness [Unknown]
  - Infusion site irritation [Unknown]
  - Infusion site pain [Unknown]
  - Device dislocation [Recovered/Resolved]
  - COVID-19 [Recovering/Resolving]
  - Infusion site pruritus [Unknown]

NARRATIVE: CASE EVENT DATE: 20200709
